FAERS Safety Report 9312397 (Version 1)
Quarter: 2013Q2

REPORT INFORMATION
  Report Type: Spontaneous
  Country: US (occurrence: US)
  Receive Date: 20130528
  Receipt Date: 20130528
  Transmission Date: 20140414
  Serious: No
  Sender: FDA-Public Use
  Company Number: US-BRISTOL-MYERS SQUIBB COMPANY-18833012

PATIENT
  Age: 7 Decade
  Sex: Female

DRUGS (6)
  1. KOMBIGLYZE XR [Suspect]
     Dosage: 1DF=2.5 MG/1000 MG
  2. EXFORGE [Concomitant]
     Dosage: 1DF=5/320-UNITS NOS
  3. SYNTHROID [Concomitant]
  4. LIPITOR [Concomitant]
  5. CALCIUM + VITAMIN D [Concomitant]
  6. MULTIVITAMIN [Concomitant]

REACTIONS (4)
  - Headache [Recovered/Resolved]
  - Diarrhoea [Recovered/Resolved]
  - Abdominal pain upper [Recovered/Resolved]
  - Hypoaesthesia oral [Recovered/Resolved]
